FAERS Safety Report 9405592 (Version 1)
Quarter: 2013Q3

REPORT INFORMATION
  Report Type: Spontaneous
  Country: JP (occurrence: JP)
  Receive Date: 20130717
  Receipt Date: 20130717
  Transmission Date: 20140515
  Serious: Yes (Other)
  Sender: FDA-Public Use
  Company Number: JP-009507513-1307JPN007008

PATIENT
  Sex: 0

DRUGS (2)
  1. FAMOTIDINE [Suspect]
     Dosage: 20 MG INJ.
  2. DORMICUM (MIDAZOLAM) [Suspect]
     Dosage: 10 MG INJ

REACTIONS (1)
  - Accident [Unknown]
